FAERS Safety Report 10289460 (Version 3)
Quarter: 2014Q4

REPORT INFORMATION
  Report Type: Spontaneous
  Country: US (occurrence: None)
  Receive Date: 20140707
  Receipt Date: 20141112
  Transmission Date: 20150528
  Serious: Yes (Other)
  Sender: FDA-Public Use
  Company Number: UTC-044729

PATIENT
  Age: 76 Year
  Sex: Female
  Weight: 53.1 kg

DRUGS (3)
  1. LETAIRIS [Concomitant]
     Active Substance: AMBRISENTAN
  2. TYVASO [Suspect]
     Active Substance: TREPROSTINIL
     Indication: COR PULMONALE CHRONIC
     Route: 055
     Dates: start: 20120611
  3. WARFARIN (WARFARIN) [Concomitant]
     Active Substance: WARFARIN

REACTIONS (6)
  - Vertigo positional [None]
  - Dizziness [None]
  - Dysphonia [None]
  - Tremor [None]
  - Deafness unilateral [None]
  - Blood iron abnormal [None]
